FAERS Safety Report 9522704 (Version 2)
Quarter: 2013Q4

REPORT INFORMATION
  Report Type: Report from Study
  Country: GB (occurrence: GB)
  Receive Date: 20130913
  Receipt Date: 20131014
  Transmission Date: 20140711
  Serious: Yes (Other)
  Sender: FDA-Public Use
  Company Number: GB-PFIZER INC-2013256454

PATIENT
  Age: 75 Year
  Sex: Female
  Weight: 58 kg

DRUGS (2)
  1. IBUPROFEN [Suspect]
     Indication: OSTEOARTHRITIS
     Dosage: 600 MG, DAILY
     Route: 048
     Dates: start: 20080510, end: 20130321
  2. PANTOPRAZOLE [Concomitant]
     Dosage: UNK
     Dates: start: 20120911

REACTIONS (1)
  - Urine albumin/creatinine ratio increased [Recovering/Resolving]
